FAERS Safety Report 8846446 (Version 2)
Quarter: 2012Q4

REPORT INFORMATION
  Report Type: Report from Study
  Country: JP (occurrence: JP)
  Receive Date: 20121017
  Receipt Date: 20121211
  Transmission Date: 20130627
  Serious: Yes (Other)
  Sender: FDA-Public Use
  Company Number: JP-BAYER-2012-105946

PATIENT
  Age: 48 Year
  Sex: Female
  Weight: 60 kg

DRUGS (2)
  1. DROSPIRENONE + ETHINYLESTRADIOL [Suspect]
     Indication: DYSMENORRHOEA
     Dosage: 1 DF, QD
     Route: 048
     Dates: start: 20120327, end: 20120618
  2. DROSPIRENONE + ETHINYLESTRADIOL [Suspect]
     Indication: UTERINE MYOMA

REACTIONS (2)
  - Anaemia [Recovered/Resolved]
  - Uterine leiomyoma [Recovered/Resolved]
